FAERS Safety Report 22535130 (Version 2)
Quarter: 2023Q2

REPORT INFORMATION
  Report Type: Report from Study
  Country: JP (occurrence: JP)
  Receive Date: 20230608
  Receipt Date: 20230626
  Transmission Date: 20230722
  Serious: Yes (Death, Hospitalization)
  Sender: FDA-Public Use
  Company Number: JP-Merck Healthcare KGaA-9234025

PATIENT
  Age: 79 Year
  Sex: Female

DRUGS (3)
  1. TEPMETKO [Suspect]
     Active Substance: TEPOTINIB HYDROCHLORIDE
     Indication: Non-small cell lung cancer recurrent
     Dates: start: 20210312, end: 202105
  2. UNSPECIFIED INGREDIENT [Concomitant]
     Active Substance: UNSPECIFIED INGREDIENT
     Indication: Chest pain
     Route: 048
     Dates: start: 20210311
  3. OXYCODONE [Concomitant]
     Active Substance: OXYCODONE
     Indication: Premedication
     Dates: start: 20210311

REACTIONS (7)
  - Death [Fatal]
  - Renal impairment [Recovering/Resolving]
  - Blepharitis [Recovering/Resolving]
  - Hyperkeratosis [Unknown]
  - Skin reaction [Unknown]
  - Nausea [Recovered/Resolved]
  - Oedema peripheral [Recovered/Resolved]

NARRATIVE: CASE EVENT DATE: 20210315
